FAERS Safety Report 6038276-X (Version None)
Quarter: 2009Q1

REPORT INFORMATION
  Report Type: 
  Country: None (occurrence: None)
  Receive Date: 20090114
  Receipt Date: 20090114
  Transmission Date: 20090719
  Serious: Yes (Hospitalization)
  Sender: FDA-Public Use
  Company Number: None

PATIENT
  Sex: Female
  Weight: 83.64 kg

DRUGS (10)
  1. CYCLOPHOSPHAMIDE [Suspect]
     Dosage: 1180 MG
  2. DOXORUBICIN HYDROCHLORIDE [Suspect]
     Dosage: 118 MG
  3. DEXAMETHASONE TAB [Concomitant]
  4. GLIPIZIDE [Concomitant]
  5. INSULIN [Concomitant]
  6. JANUVIA [Concomitant]
  7. LISINOPRIL [Concomitant]
  8. NEUPOGEN [Concomitant]
  9. SYNTHROID [Concomitant]
  10. ZOLOFT [Concomitant]

REACTIONS (5)
  - ACTIVITIES OF DAILY LIVING IMPAIRED [None]
  - ASTHENIA [None]
  - DEPRESSION [None]
  - FATIGUE [None]
  - HYPOPHAGIA [None]
